FAERS Safety Report 6532363-5 (Version None)
Quarter: 2010Q1

REPORT INFORMATION
  Report Type: 
  Country: None (occurrence: None)
  Receive Date: 20100108
  Receipt Date: 20091229
  Transmission Date: 20100710
  Serious: Yes (Life-Threatening, Other)
  Sender: FDA-Public Use
  Company Number: CH-WYE-G05252710

PATIENT
  Age: 45 Year
  Sex: Female
  Weight: 75 kg

DRUGS (24)
  1. EFFEXOR [Interacting]
     Indication: DEPRESSION
     Dosage: 150 MG DAILY, SINCE YEARS, TREATMENT STOPPED ON 12-DEC-2009
     Route: 048
  2. CORDARONE [Interacting]
     Indication: ATRIAL FIBRILLATION
     Route: 048
     Dates: start: 20091105, end: 20091212
  3. CORDARONE [Interacting]
     Indication: ATRIAL FLUTTER
  4. CONCOR [Interacting]
     Indication: VENTRICULAR ARRHYTHMIA
     Dosage: 2.5 MG ONCE DAILY, START DATE UNKNOWN, TEMPORARILY WITHDRAWN, THEN FROM 03-DEC-2009 TO 12-DEC-2009
     Route: 048
  5. DILTIAZEM HYDROCHLORIDE [Interacting]
     Indication: ATRIAL FIBRILLATION
     Dosage: TEMPORARILY STOPPED THEN FROM 08-DEC-2009 TO 11-DEC-2009, 120 MG ONCE DAILY
     Route: 048
  6. DILTIAZEM HYDROCHLORIDE [Interacting]
     Indication: ATRIAL FLUTTER
  7. PRIMPERAN - SLOW RELEASE [Interacting]
     Dosage: 10 MG EVERY 1 PRN
     Route: 048
     Dates: start: 20091106, end: 20091212
  8. LISINOPRIL [Concomitant]
     Indication: RENAL FAILURE CHRONIC
     Route: 048
     Dates: start: 20091211
  9. TORSEMIDE [Concomitant]
     Indication: CARDIAC FAILURE
     Route: 048
     Dates: start: 20091210
  10. ZOLPIDEM TARTRATE [Concomitant]
     Route: 048
     Dates: start: 20091115
  11. CLEXANE [Concomitant]
     Indication: CARDIAC VALVE PROSTHESIS USER
     Route: 058
     Dates: start: 20091001
  12. FLOXAPEN [Concomitant]
     Indication: DEVICE RELATED INFECTION
     Route: 040
     Dates: start: 20091105
  13. TRANXILIUM [Concomitant]
     Route: 048
     Dates: start: 20091115
  14. PANTOPRAZOLE [Concomitant]
     Route: 048
     Dates: start: 20091118, end: 20091212
  15. RIMACTANE [Suspect]
     Indication: STAPHYLOCOCCAL SEPSIS
     Route: 040
     Dates: start: 20091105, end: 20091212
  16. ALDACTONE [Concomitant]
     Indication: CARDIAC FAILURE
     Route: 048
     Dates: start: 20091103
  17. COMILORID [Concomitant]
     Route: 048
     Dates: start: 20091107, end: 20091123
  18. NICORETTE [Concomitant]
     Indication: TOBACCO ABUSE
     Dosage: 5 MG EVERY 1 PRN
     Route: 062
     Dates: start: 20091101
  19. POTASSIUM CHLORIDE [Concomitant]
     Indication: HYPOKALAEMIA
     Dosage: 30 MG EVERY 1 PRN
     Route: 048
     Dates: start: 20091101
  20. SERETIDE [Concomitant]
     Route: 055
  21. SUPRADYN [Concomitant]
     Route: 048
     Dates: start: 20091110, end: 20091212
  22. RULOFER [Concomitant]
     Route: 048
     Dates: start: 20091110, end: 20091212
  23. METHADONE HYDROCHLORIDE [Interacting]
     Indication: ABNORMAL BEHAVIOUR
     Dosage: SINCE YEARS, 20 MG DAILY, TREATMENT STOPPED ON 12-DEC-2009
     Route: 048
  24. METHADONE HYDROCHLORIDE [Interacting]
     Indication: DRUG DEPENDENCE

REACTIONS (18)
  - ATRIAL FLUTTER [None]
  - ATRIOVENTRICULAR BLOCK COMPLETE [None]
  - BLOOD CREATININE INCREASED [None]
  - BRADYCARDIA [None]
  - CARDIAC ARREST [None]
  - CARDIAC FAILURE [None]
  - CONDITION AGGRAVATED [None]
  - DEVICE RELATED INFECTION [None]
  - DRUG INTERACTION [None]
  - EJECTION FRACTION DECREASED [None]
  - ELECTROCARDIOGRAM QT PROLONGED [None]
  - HYPOKALAEMIA [None]
  - MITRAL VALVE DISEASE [None]
  - STAPHYLOCOCCAL SEPSIS [None]
  - SUPRAVENTRICULAR TACHYCARDIA [None]
  - TRANSAMINASES ABNORMAL [None]
  - TRICUSPID VALVE INCOMPETENCE [None]
  - VENTRICULAR FIBRILLATION [None]
